FAERS Safety Report 8780127 (Version 1)
Quarter: 2012Q4

REPORT INFORMATION
  Report Type: Spontaneous
  Country: US (occurrence: None)
  Receive Date: 20120831
  Receipt Date: 20120831
  Transmission Date: 20130627
  Serious: Yes (Other)
  Sender: FDA-Public Use
  Company Number: None

PATIENT
  Age: 68 Year
  Sex: Female
  Weight: 64.5 kg

DRUGS (1)
  1. RAGADENOSON [Suspect]
     Route: 042
     Dates: start: 20120716

REACTIONS (2)
  - Pain in extremity [None]
  - Product quality issue [None]
